FAERS Safety Report 4929127-2 (Version None)
Quarter: 2006Q1

REPORT INFORMATION
  Report Type: 
  Country: None (occurrence: None)
  Receive Date: 20060301
  Receipt Date: 20060221
  Transmission Date: 20060701
  Serious: Yes (Death)
  Sender: FDA-Public Use
  Company Number: US-BRISTOL-MYERS SQUIBB COMPANY-13290663

PATIENT
  Age: 79 Year
  Sex: Male

DRUGS (3)
  1. MEGACE [Suspect]
     Indication: DECREASED APPETITE
  2. CISPLATIN [Suspect]
     Indication: LUNG NEOPLASM MALIGNANT
     Dates: start: 20051205, end: 20051205
  3. TAXOTERE [Suspect]
     Indication: LUNG NEOPLASM MALIGNANT
     Dates: start: 20051205, end: 20051205

REACTIONS (1)
  - DEATH [None]
